FAERS Safety Report 7722954-8 (Version None)
Quarter: 2011Q3

REPORT INFORMATION
  Report Type: 
  Country: None (occurrence: None)
  Receive Date: 20110825
  Receipt Date: 20110815
  Transmission Date: 20111222
  Serious: Yes (Hospitalization)
  Sender: FDA-Public Use
  Company Number: 15972342

PATIENT
  Age: 73 Year
  Sex: Male

DRUGS (1)
  1. WARFARIN SODIUM [Suspect]
     Indication: LEFT VENTRICULAR DYSFUNCTION

REACTIONS (2)
  - GASTRIC HAEMORRHAGE [None]
  - GASTRIC POLYPS [None]
